FAERS Safety Report 5678981-8 (Version None)
Quarter: 2008Q1

REPORT INFORMATION
  Report Type: 
  Country: None (occurrence: None)
  Receive Date: 20080325
  Receipt Date: 20080312
  Transmission Date: 20080703
  Serious: Yes (Congenital Anomaly)
  Sender: FDA-Public Use
  Company Number: A0662884A

PATIENT
  Sex: Female
  Weight: 4.1 kg

DRUGS (2)
  1. PAXIL [Suspect]
     Indication: DEPRESSION
     Dosage: 20MG PER DAY
     Dates: start: 19990101, end: 20030101
  2. VITAMIN TAB [Concomitant]

REACTIONS (6)
  - AORTIC VALVE STENOSIS [None]
  - DILATATION ATRIAL [None]
  - DILATATION VENTRICULAR [None]
  - DRUG EXPOSURE DURING PREGNANCY [None]
  - RESPIRATORY FAILURE [None]
  - VENTRICULAR SEPTAL DEFECT [None]
